FAERS Safety Report 6170937-4 (Version None)
Quarter: 2009Q2

REPORT INFORMATION
  Report Type: 
  Country: None (occurrence: None)
  Receive Date: 20090423
  Receipt Date: 20090423
  Transmission Date: 20091009
  Serious: Yes (Hospitalization)
  Sender: FDA-Public Use
  Company Number: None

PATIENT
  Age: 76 Year
  Sex: Male

DRUGS (9)
  1. PENTOXIFYLLINE [Suspect]
     Indication: GANGRENE
     Dosage: PO
     Route: 048
     Dates: start: 20090129, end: 20090204
  2. PENTOXIFYLLINE [Suspect]
     Indication: RENAL FAILURE CHRONIC
     Dosage: PO
     Route: 048
     Dates: start: 20090129, end: 20090204
  3. GLIPIZIDE [Concomitant]
  4. LANSOPRAZOLE [Concomitant]
  5. SIMVASTATIN [Concomitant]
  6. CLOPIDOGREL [Concomitant]
  7. NADOLOL [Concomitant]
  8. CALCIUM [Concomitant]
  9. ISOSORBIDE DINITRATE [Concomitant]

REACTIONS (3)
  - NEUTROPENIA [None]
  - THERAPEUTIC RESPONSE DECREASED [None]
  - WHITE BLOOD CELL COUNT DECREASED [None]
